FAERS Safety Report 8880458 (Version 2)
Quarter: 2012Q4

REPORT INFORMATION
  Report Type: 
  Country: DE (occurrence: DE)
  Receive Date: 20121031
  Receipt Date: 20121105
  Transmission Date: 20130627
  Serious: Yes (Hospitalization)
  Sender: FDA-Public Use
  Company Number: DE-ASTRAZENECA-2012SE81637

PATIENT
  Age: 24862 Day
  Sex: Male
  Weight: 81 kg

DRUGS (5)
  1. BRILIQUE [Suspect]
     Route: 048
     Dates: start: 20121017, end: 20121019
  2. ASS [Concomitant]
     Route: 048
  3. SIMVASTATIN [Concomitant]
  4. ENALAPRIL [Concomitant]
  5. METOPROLOL [Concomitant]

REACTIONS (1)
  - Pancreatitis [Recovered/Resolved]
